FAERS Safety Report 6590551-6 (Version None)
Quarter: 2010Q1

REPORT INFORMATION
  Report Type: 
  Country: None (occurrence: None)
  Receive Date: 20100219
  Receipt Date: 20100212
  Transmission Date: 20100710
  Serious: Yes (Life-Threatening, Hospitalization, Other)
  Sender: FDA-Public Use
  Company Number: JP-PFIZER INC-2006085502

PATIENT
  Age: 57 Year
  Sex: Female

DRUGS (4)
  1. DEPO-MEDROL [Suspect]
     Indication: HERNIA PAIN
     Route: 037
     Dates: start: 20060704, end: 20060704
  2. ROPIVACAINE HYDROCHLORIDE [Concomitant]
     Route: 008
     Dates: start: 20060704, end: 20060704
  3. LIDOCAINE HYDROCHLORIDE [Concomitant]
  4. NICARDIPINE HYDROCHLORIDE [Concomitant]

REACTIONS (3)
  - BRAIN DEATH [None]
  - BRAIN STEM INFARCTION [None]
  - CEREBRAL INFARCTION [None]
